FAERS Safety Report 5704721-X (Version None)
Quarter: 2008Q2

REPORT INFORMATION
  Report Type: 
  Country: None (occurrence: None)
  Receive Date: 20080414
  Receipt Date: 20080409
  Transmission Date: 20081010
  Serious: Yes (Hospitalization)
  Sender: FDA-Public Use
  Company Number: US-KINGPHARMUSA00001-K200800410

PATIENT

DRUGS (1)
  1. FLORINEF [Suspect]

REACTIONS (1)
  - SURGERY [None]
